FAERS Safety Report 14767941 (Version 1)
Quarter: 2018Q2

REPORT INFORMATION
  Report Type: Spontaneous
  Country: US (occurrence: US)
  Receive Date: 20180410
  Receipt Date: 20180410
  Transmission Date: 20180711
  Serious: Yes (Other)
  Sender: FDA-Public Use
  Company Number: None

PATIENT
  Age: 58 Year
  Sex: Female
  Weight: 108.9 kg

DRUGS (7)
  1. TRAZODONE [Concomitant]
     Active Substance: TRAZODONE HYDROCHLORIDE
  2. FISH OIL [Concomitant]
     Active Substance: FISH OIL
  3. LOW DOSE ASPIRIN [Concomitant]
     Active Substance: ASPIRIN
  4. CHLORTHALIDONE. [Concomitant]
     Active Substance: CHLORTHALIDONE
  5. TAMIFLU [Suspect]
     Active Substance: OSELTAMIVIR PHOSPHATE
     Indication: INFLUENZA
     Dosage: ?          QUANTITY:10 CAPSULE(S);?
     Route: 048
     Dates: start: 20180403, end: 20180407
  6. LOSARTAN. [Concomitant]
     Active Substance: LOSARTAN
  7. SIMVISTATIN [Concomitant]
     Active Substance: SIMVASTATIN

REACTIONS (5)
  - Insomnia [None]
  - Tachyphrenia [None]
  - Mood altered [None]
  - Self-injurious ideation [None]
  - Decreased appetite [None]

NARRATIVE: CASE EVENT DATE: 20180406
